FAERS Safety Report 25012165 (Version 1)
Quarter: 2025Q1

REPORT INFORMATION
  Report Type: Spontaneous
  Country: US (occurrence: US)
  Receive Date: 20250226
  Receipt Date: 20250226
  Transmission Date: 20250409
  Serious: No
  Sender: MERCK SHARP & DOHME LLC
  Company Number: US-PFIZER INC-202500022434

PATIENT
  Age: 64 Year
  Sex: Female

DRUGS (5)
  1. TUCATINIB [Suspect]
     Active Substance: TUCATINIB
     Dosage: TAKE TWO 150MG TABLETS BY MOUTH TWICE DAILY
     Route: 048
  2. FASLODEX [Concomitant]
     Active Substance: FULVESTRANT
  3. PHESGO [Concomitant]
     Active Substance: HYALURONIDASE-ZZXF\PERTUZUMAB\TRASTUZUMAB
  4. PHESGO [Concomitant]
     Active Substance: HYALURONIDASE-ZZXF\PERTUZUMAB\TRASTUZUMAB
  5. TRASTUZUMAB [Concomitant]
     Active Substance: TRASTUZUMAB

REACTIONS (2)
  - Off label use [Unknown]
  - Product use issue [Unknown]
